FAERS Safety Report 16719892 (Version 1)
Quarter: 2019Q3

REPORT INFORMATION
  Report Type: Spontaneous
  Country: CN (occurrence: CN)
  Receive Date: 20190820
  Receipt Date: 20190820
  Transmission Date: 20191005
  Serious: Yes (Other)
  Sender: FDA-Public Use
  Company Number: CN-PFIZER INC-2019351379

PATIENT
  Age: 59 Year
  Sex: Male
  Weight: 65 kg

DRUGS (11)
  1. FIBRINOGENASE [Concomitant]
     Indication: THERAPEUTIC PROCEDURE
     Dosage: 200 (UNKNOWN UNIT), 1X/DAY
     Route: 041
     Dates: start: 20190717, end: 20190725
  2. LIPITOR [Suspect]
     Active Substance: ATORVASTATIN CALCIUM
     Indication: DYSLIPIDAEMIA
     Dosage: 20 MG, 1X/DAY
     Route: 048
     Dates: start: 20190718, end: 20190725
  3. EN BI PU [Suspect]
     Active Substance: DIBUTYL PHTHALATE
     Indication: THERAPEUTIC PROCEDURE
     Dosage: 0.2 G, 3X/DAY
     Route: 048
     Dates: start: 20190718, end: 20190725
  4. FUROSEMIDE. [Concomitant]
     Active Substance: FUROSEMIDE
     Indication: POLYURIA
     Dosage: 20 MG, 1X/DAY
     Route: 048
     Dates: start: 20190718, end: 20190725
  5. EDARAVONE [Suspect]
     Active Substance: EDARAVONE
     Indication: CEREBRAL INFARCTION
     Dosage: 30 MG, 2X/DAY
     Route: 041
     Dates: start: 20190717, end: 20190728
  6. FRAGMIN [Suspect]
     Active Substance: DALTEPARIN SODIUM
     Indication: THERAPEUTIC PROCEDURE
     Dosage: 5000 IU, 2X/DAY
     Route: 058
     Dates: start: 20190717, end: 20190728
  7. PARIET [Suspect]
     Active Substance: RABEPRAZOLE SODIUM
     Indication: THERAPEUTIC PROCEDURE
     Dosage: 20 MG, 1X/DAY
     Route: 048
     Dates: start: 20190717, end: 20190725
  8. MI KE BAO [Concomitant]
     Active Substance: METHYLCOBALAMIN
     Indication: NUTRITIONAL SUPPLEMENTATION
     Dosage: 500 UG, 1X/DAY
     Route: 041
     Dates: start: 20190717, end: 20190725
  9. SULPERAZON [Suspect]
     Active Substance: CEFOPERAZONE SODIUM\SULBACTAM SODIUM
     Indication: INFECTION
     Dosage: 3 G, 2X/DAY
     Route: 041
     Dates: start: 20190719, end: 20190725
  10. GLUCOBAY [Suspect]
     Active Substance: ACARBOSE
     Indication: BLOOD GLUCOSE ABNORMAL
     Dosage: 100 MG, 3X/DAY
     Route: 048
     Dates: start: 20190723, end: 20190725
  11. MUCOSOLVAN [Concomitant]
     Active Substance: AMBROXOL HYDROCHLORIDE
     Indication: PRODUCTIVE COUGH
     Dosage: 30 MG, 2X/DAY
     Route: 040
     Dates: start: 20190717, end: 20190725

REACTIONS (2)
  - Drug-induced liver injury [Recovering/Resolving]
  - Hepatic function abnormal [Recovering/Resolving]

NARRATIVE: CASE EVENT DATE: 20190725
